FAERS Safety Report 7658332-X (Version None)
Quarter: 2011Q3

REPORT INFORMATION
  Report Type: 
  Country: None (occurrence: None)
  Receive Date: 20110805
  Receipt Date: 20110722
  Transmission Date: 20111222
  Serious: Yes (Other)
  Sender: FDA-Public Use
  Company Number: DE-UCBSA-037543

PATIENT

DRUGS (1)
  1. KEPPRA [Suspect]
     Dosage: 500 MG / 100 ML NACL WITHIN 2-4 MINUTES
     Route: 041

REACTIONS (2)
  - THROMBOPHLEBITIS [None]
  - INJECTION SITE PAIN [None]
